FAERS Safety Report 10098204 (Version 1)
Quarter: 2014Q2

REPORT INFORMATION
  Report Type: Spontaneous
  Country: US (occurrence: US)
  Receive Date: 20140423
  Receipt Date: 20140423
  Transmission Date: 20141212
  Serious: Yes (Other)
  Sender: FDA-Public Use
  Company Number: US-BRISTOL-MYERS SQUIBB COMPANY-20070025

PATIENT
  Sex: Male

DRUGS (1)
  1. YERVOY [Suspect]
     Indication: MALIGNANT MELANOMA

REACTIONS (2)
  - Myasthenia gravis [Unknown]
  - Malignant neoplasm progression [Unknown]
